FAERS Safety Report 15473782 (Version 1)
Quarter: 2018Q4

REPORT INFORMATION
  Report Type: Spontaneous
  Country: JP (occurrence: JP)
  Receive Date: 20181008
  Receipt Date: 20181008
  Transmission Date: 20190205
  Serious: Yes (Death)
  Sender: FDA-Public Use
  Company Number: JP-SHIONOGI, INC-2018001825

PATIENT

DRUGS (4)
  1. OXYCONTIN [Concomitant]
     Active Substance: OXYCODONE HYDROCHLORIDE
     Dosage: UNK
     Route: 065
  2. OXYCONTIN [Concomitant]
     Active Substance: OXYCODONE HYDROCHLORIDE
     Indication: COLON CANCER
     Dosage: 10 MG, QD
     Route: 048
     Dates: start: 201808, end: 201808
  3. FENTOS [Concomitant]
     Active Substance: FENTANYL
     Indication: COLON CANCER
     Dosage: UNK
     Route: 061
     Dates: start: 201808, end: 201808
  4. SYMPROIC [Suspect]
     Active Substance: NALDEMEDINE
     Indication: CONSTIPATION
     Dosage: 0.2 MG, QD
     Route: 048
     Dates: start: 201808, end: 201808

REACTIONS (1)
  - Colon cancer [Fatal]
